FAERS Safety Report 4910850-0 (Version None)
Quarter: 2006Q1

REPORT INFORMATION
  Report Type: 
  Country: None (occurrence: None)
  Receive Date: 20060214
  Receipt Date: 20060207
  Transmission Date: 20060701
  Serious: Yes (Other)
  Sender: FDA-Public Use
  Company Number: GB-GLAXOSMITHKLINE-B0409368A

PATIENT
  Age: 26 Year
  Sex: Male

DRUGS (3)
  1. EPIVIR [Suspect]
     Dates: start: 20010101
  2. DIDANOSINE [Suspect]
     Dates: start: 20010101
  3. EFAVIRENZ [Suspect]
     Dates: start: 20010101

REACTIONS (2)
  - BLOOD ANDROSTENEDIONE INCREASED [None]
  - GYNAECOMASTIA [None]
